FAERS Safety Report 7997396-0 (Version None)
Quarter: 2011Q4

REPORT INFORMATION
  Report Type: 
  Country: None (occurrence: None)
  Receive Date: 20111221
  Receipt Date: 20111219
  Transmission Date: 20120403
  Serious: Yes (Other)
  Sender: FDA-Public Use
  Company Number: JP-PFIZER INC-2011308540

PATIENT
  Age: 67 Year
  Sex: Female

DRUGS (2)
  1. SELBEX [Concomitant]
     Dosage: UNK
     Route: 048
     Dates: start: 20111021, end: 20111128
  2. CELECOXIB [Suspect]
     Indication: OSTEOARTHRITIS
     Dosage: 200 MG DAILY
     Route: 048
     Dates: start: 20111021

REACTIONS (1)
  - HYPOACUSIS [None]
